FAERS Safety Report 9379919 (Version 2)
Quarter: 2013Q3

REPORT INFORMATION
  Report Type: Spontaneous
  Country: US (occurrence: US)
  Receive Date: 20130702
  Receipt Date: 20130808
  Transmission Date: 20140515
  Serious: Yes (Hospitalization)
  Sender: FDA-Public Use
  Company Number: US-JNJFOC-20130617708

PATIENT
  Sex: Female

DRUGS (9)
  1. XARELTO [Suspect]
     Indication: DEEP VEIN THROMBOSIS
     Route: 048
  2. XARELTO [Suspect]
     Indication: PULMONARY EMBOLISM
     Route: 048
  3. ATENOLOL [Concomitant]
     Indication: HYPERTENSION
     Dosage: DAILY
     Route: 065
  4. FOLATE [Concomitant]
     Indication: ANAEMIA
     Dosage: DAILY
     Route: 065
  5. AMBIEN [Concomitant]
     Indication: INSOMNIA
     Dosage: EVERY NIGHT AT BED TIME
     Route: 065
  6. LORAZEPAM [Concomitant]
     Indication: ANXIETY
     Route: 065
  7. AVASTIN [Concomitant]
     Indication: LUNG ADENOCARCINOMA METASTATIC
     Route: 065
     Dates: start: 20130520
  8. CARBOPLATIN [Concomitant]
     Indication: LUNG ADENOCARCINOMA METASTATIC
     Route: 065
     Dates: start: 20130520
  9. ALIMTA [Concomitant]
     Indication: LUNG ADENOCARCINOMA METASTATIC
     Route: 065
     Dates: start: 20130520

REACTIONS (1)
  - Embolic stroke [Recovering/Resolving]
